FAERS Safety Report 9782157 (Version 2)
Quarter: 2013Q4

REPORT INFORMATION
  Report Type: Spontaneous
  Country: NL (occurrence: NL)
  Receive Date: 20131226
  Receipt Date: 20131226
  Transmission Date: 20140711
  Serious: Yes (Other)
  Sender: FDA-Public Use
  Company Number: NL-ROCHE-1303009

PATIENT
  Sex: Male

DRUGS (5)
  1. PEGASYS [Suspect]
     Indication: POLYCYTHAEMIA VERA
     Route: 058
  2. PEGASYS [Suspect]
     Dosage: FOR 5 WEEKS
     Route: 058
  3. PEGASYS [Suspect]
     Dosage: FOR 10 WEEKS
     Route: 058
  4. PEGASYS [Suspect]
     Dosage: FOR 4 WEEKS
     Route: 058
  5. PEGASYS [Suspect]
     Dosage: DRUG WAS DISCONTINUED AS EVENT WERE PERSISTING
     Route: 058
     Dates: end: 201310

REACTIONS (6)
  - Arthralgia [Recovering/Resolving]
  - Local swelling [Recovered/Resolved]
  - Joint swelling [Recovered/Resolved]
  - Feeling hot [Unknown]
  - Joint warmth [Unknown]
  - Erythema [Unknown]
